FAERS Safety Report 11201884 (Version 2)
Quarter: 2015Q3

REPORT INFORMATION
  Report Type: Report from Study
  Country: US (occurrence: US)
  Receive Date: 20150619
  Receipt Date: 20150708
  Transmission Date: 20151125
  Serious: Yes (Hospitalization)
  Sender: FDA-Public Use
  Company Number: US-BIOGENIDEC-2015BI082564

PATIENT
  Age: 48 Year
  Sex: Female
  Weight: 102 kg

DRUGS (29)
  1. NORVASC [Concomitant]
     Active Substance: AMLODIPINE BESYLATE
  2. NYSTATIN. [Concomitant]
     Active Substance: NYSTATIN
  3. OXYCODONE HCL CR [Concomitant]
  4. ABILIFY [Concomitant]
     Active Substance: ARIPIPRAZOLE
  5. ALBUTEROL SULFATE. [Concomitant]
     Active Substance: ALBUTEROL SULFATE
  6. COZAAR [Concomitant]
     Active Substance: LOSARTAN POTASSIUM
  7. WELLBUTRIN [Concomitant]
     Active Substance: BUPROPION HYDROCHLORIDE
  8. ZYRTEC [Concomitant]
     Active Substance: CETIRIZINE HYDROCHLORIDE
  9. AMPYRA [Concomitant]
     Active Substance: DALFAMPRIDINE
  10. LASIX [Concomitant]
     Active Substance: FUROSEMIDE
  11. RECLAST [Concomitant]
     Active Substance: ZOLEDRONIC ACID
  12. XANAX [Concomitant]
     Active Substance: ALPRAZOLAM
  13. NAPROXEN DR [Concomitant]
  14. MIRALAX [Concomitant]
     Active Substance: POLYETHYLENE GLYCOL 3350
  15. TECFIDERA [Suspect]
     Active Substance: DIMETHYL FUMARATE
     Indication: MULTIPLE SCLEROSIS
     Route: 048
  16. ADDERALL XR [Concomitant]
     Active Substance: AMPHETAMINE ASPARTATE\AMPHETAMINE SULFATE\DEXTROAMPHETAMINE SACCHARATE\DEXTROAMPHETAMINE SULFATE
  17. FLEXERIL [Concomitant]
     Active Substance: CYCLOBENZAPRINE HYDROCHLORIDE
  18. LIPITOR [Concomitant]
     Active Substance: ATORVASTATIN CALCIUM
  19. PROAIR HFA [Concomitant]
     Active Substance: ALBUTEROL SULFATE
  20. FISH OIL [Concomitant]
     Active Substance: FISH OIL
  21. CORTICOOL [Concomitant]
  22. AMITRIPTYLINE [Concomitant]
     Active Substance: AMITRIPTYLINE
  23. ASPIRIN EC [Concomitant]
     Active Substance: ASPIRIN
  24. TECFIDERA [Suspect]
     Active Substance: DIMETHYL FUMARATE
     Indication: MULTIPLE SCLEROSIS
     Route: 048
     Dates: start: 20131007
  25. K-DUR [Concomitant]
     Active Substance: POTASSIUM CHLORIDE
  26. PREVACID [Concomitant]
     Active Substance: LANSOPRAZOLE
  27. SANTURA XR [Concomitant]
  28. CALCIUM/VIT D [Concomitant]
  29. COLACE [Concomitant]
     Active Substance: DOCUSATE SODIUM

REACTIONS (2)
  - Kidney infection [Unknown]
  - Weight increased [Recovered/Resolved]

NARRATIVE: CASE EVENT DATE: 20131031
